FAERS Safety Report 18915704 (Version 1)
Quarter: 2021Q1

REPORT INFORMATION
  Report Type: Spontaneous
  Country: US (occurrence: US)
  Receive Date: 20210219
  Receipt Date: 20210219
  Transmission Date: 20210420
  Serious: No
  Sender: FDA-Public Use
  Company Number: US-TAKEDA-2021TUS010770

PATIENT
  Sex: Female
  Weight: 117.91 kg

DRUGS (18)
  1. SERTRALINE [Concomitant]
     Active Substance: SERTRALINE HYDROCHLORIDE
  2. AZELASTINE. [Concomitant]
     Active Substance: AZELASTINE HYDROCHLORIDE
  3. MORPHINE [Concomitant]
     Active Substance: MORPHINE
  4. DIPHENHYDRAMINE. [Concomitant]
     Active Substance: DIPHENHYDRAMINE
  5. FLONASE [Concomitant]
     Active Substance: FLUTICASONE PROPIONATE
  6. EPINEPHRINE. [Concomitant]
     Active Substance: EPINEPHRINE
  7. LIDOCAINE. [Concomitant]
     Active Substance: LIDOCAINE
  8. HYDROCHLOROTHIAZIDE. [Concomitant]
     Active Substance: HYDROCHLOROTHIAZIDE
  9. VITAMIN D3 [Concomitant]
     Active Substance: CHOLECALCIFEROL
  10. METHOTREXATE. [Concomitant]
     Active Substance: METHOTREXATE
  11. ALEVE [Concomitant]
     Active Substance: NAPROXEN SODIUM
  12. HYDROXYCHLOROQUINE [Concomitant]
     Active Substance: HYDROXYCHLOROQUINE
  13. GAMMAGARD LIQUID [Suspect]
     Active Substance: HUMAN IMMUNOGLOBULIN G
     Indication: IMMUNODEFICIENCY COMMON VARIABLE
     Dosage: 30 GRAM, Q4WEEKS
     Route: 042
     Dates: start: 20201217
  14. TYLENOL [Concomitant]
     Active Substance: ACETAMINOPHEN
  15. LYRICA [Concomitant]
     Active Substance: PREGABALIN
  16. FOLIC ACID. [Concomitant]
     Active Substance: FOLIC ACID
  17. XTAMPZA ER [Concomitant]
     Active Substance: OXYCODONE
  18. SODIUM CHLORIDE. [Concomitant]
     Active Substance: SODIUM CHLORIDE

REACTIONS (2)
  - Pain [Unknown]
  - Infusion related reaction [Unknown]
